FAERS Safety Report 7000524-7 (Version None)
Quarter: 2010Q3

REPORT INFORMATION
  Report Type: 
  Country: None (occurrence: None)
  Receive Date: 20100920
  Receipt Date: 20070502
  Transmission Date: 20110219
  Serious: Yes (Other)
  Sender: FDA-Public Use
  Company Number: US-ASTRAZENECA-2006UW21372

PATIENT
  Age: 805 Month
  Sex: Male
  Weight: 93 kg

DRUGS (10)
  1. SEROQUEL [Suspect]
     Indication: MENTAL DISORDER
     Route: 048
     Dates: start: 20031203
  2. SEROQUEL [Suspect]
     Indication: ANGER
     Route: 048
     Dates: start: 20031203
  3. SEROQUEL [Suspect]
     Route: 048
     Dates: start: 20041201
  4. SEROQUEL [Suspect]
     Route: 048
     Dates: start: 20041201
  5. AMANTADINE [Concomitant]
     Dates: start: 20050728
  6. SINEMET CR [Concomitant]
     Dosage: 50 / 200 MG, THRICE A DAY
     Dates: start: 20040924
  7. PAXIL [Concomitant]
     Dates: start: 19980423
  8. OXYCODONE HCL AND ACETAMINOPHEN [Concomitant]
     Dosage: 5 MG/ 325 MG TO 7.5 /325 MG
     Dates: start: 20040414
  9. PROMETHAZINE [Concomitant]
     Dates: start: 19980210
  10. HYDROCHLOROTHIAZIDE [Concomitant]
     Dosage: 25 MG HALF TABLET DAILY
     Dates: start: 19970820

REACTIONS (2)
  - DIABETES MELLITUS [None]
  - TARDIVE DYSKINESIA [None]
